FAERS Safety Report 10179187 (Version 1)
Quarter: 2014Q2

REPORT INFORMATION
  Report Type: Spontaneous
  Country: US (occurrence: None)
  Receive Date: 20140514
  Receipt Date: 20140514
  Transmission Date: 20141212
  Serious: Yes (Other)
  Sender: FDA-Public Use
  Company Number: ADR-2013-00710

PATIENT
  Sex: Male

DRUGS (1)
  1. LIORESAL INTRATHECAL (BACLOFEN INJECTION)500 MCG/ML [Suspect]
     Indication: MUSCLE SPASTICITY
     Dosage: 77.9 MCG/DAY

REACTIONS (4)
  - Device malfunction [None]
  - Muscle spasticity [None]
  - Overdose [None]
  - Hypotonia [None]
